FAERS Safety Report 7698776-3 (Version None)
Quarter: 2011Q3

REPORT INFORMATION
  Report Type: 
  Country: None (occurrence: None)
  Receive Date: 20110819
  Receipt Date: 20110816
  Transmission Date: 20111222
  Serious: Yes (Other)
  Sender: FDA-Public Use
  Company Number: SE-ABBOTT-11P-150-0838452-00

PATIENT
  Age: 28 Year
  Sex: Female

DRUGS (2)
  1. VALPROATE SODIUM [Suspect]
     Indication: EPILEPSY
     Route: 048
  2. LAMOTRIGINE [Concomitant]
     Indication: PRODUCT USED FOR UNKNOWN INDICATION

REACTIONS (6)
  - PRODUCT QUALITY ISSUE [None]
  - SPEECH DISORDER [None]
  - DRUG INEFFECTIVE [None]
  - FATIGUE [None]
  - DECREASED APPETITE [None]
  - EPILEPSY [None]
